FAERS Safety Report 9356715 (Version 2)
Quarter: 2013Q3

REPORT INFORMATION
  Report Type: Spontaneous
  Country: DE (occurrence: DE)
  Receive Date: 20130619
  Receipt Date: 20130708
  Transmission Date: 20140515
  Serious: Yes (Hospitalization, Other)
  Sender: FDA-Public Use
  Company Number: PHHY2013DE045013

PATIENT
  Sex: Female
  Weight: 81 kg

DRUGS (24)
  1. CERTICAN [Suspect]
     Indication: PROPHYLAXIS AGAINST TRANSPLANT REJECTION
     Dosage: 0.75 MG, (0.75-0-0.25
     Route: 048
     Dates: start: 20130129, end: 20130204
  2. CERTICAN [Suspect]
     Dosage: 0.75 MG, (0.75-0-0.75 )
     Route: 048
     Dates: start: 20130205, end: 20130207
  3. CERTICAN [Suspect]
     Dosage: 1.0 MG, (1.0-0-1.25)
     Route: 048
     Dates: start: 20130208, end: 20130208
  4. CERTICAN [Suspect]
     Dosage: DAILY INCREASE BY 0.25 MG
     Route: 048
     Dates: start: 20130209, end: 20130218
  5. CERTICAN [Suspect]
     Dosage: 2.5 MG (2.5-0-2.0)
     Route: 048
     Dates: start: 20130219, end: 20130220
  6. CERTICAN [Suspect]
     Dosage: 3.0 MG (3.0-0-3.0)
     Route: 048
     Dates: start: 20130221, end: 20130224
  7. CERTICAN [Suspect]
     Dosage: 3.0 MG (3.0-0-2.5)
     Route: 048
     Dates: start: 20130225, end: 20130225
  8. CERTICAN [Suspect]
     Dosage: 2.75 MG (2.75-0-3.0)
     Route: 048
     Dates: start: 20130226, end: 2013
  9. CERTICAN [Suspect]
     Dosage: 1.75 MG (1.75-0-1.75)
     Route: 048
     Dates: start: 2013
  10. VANCOMYCIN [Suspect]
     Indication: BACTERAEMIA
     Dosage: UNK
     Route: 042
     Dates: end: 20130425
  11. MERONEM [Suspect]
     Indication: BACTERAEMIA
     Dosage: UNK
     Route: 042
     Dates: end: 20130425
  12. CIPROBAY [Suspect]
     Indication: BACTERAEMIA
     Dosage: UNK
     Route: 042
     Dates: end: 20130425
  13. CELLCEPT [Concomitant]
     Dosage: 1.25 MG (0.5-0-0.75)
  14. PREDNISOLONE [Concomitant]
     Dosage: 5 MG, UNK
  15. REVATIO [Concomitant]
     Dosage: 20 MG, TID
  16. TOREM [Concomitant]
     Dosage: 10 MG, BID
  17. ENALAPRIL [Concomitant]
     Dosage: 2.5 MG, UNK
  18. DILZEM [Concomitant]
     Dosage: 30 MG, TID
  19. EUTHYROX [Concomitant]
     Dosage: 75 UG, QD
  20. CALCIVIT [Concomitant]
  21. KALINOR                            /00279301/ [Concomitant]
     Dosage: ACCORDING POTASSIUM LEVEL
  22. LEVETIRACETAM [Concomitant]
     Dosage: 500 MG, BID
  23. PANTOZOL [Concomitant]
     Dosage: 20 MG, QD
  24. MELATONIN [Concomitant]
     Dosage: AT NIGHT

REACTIONS (10)
  - Bacteraemia [Recovered/Resolved]
  - Chills [Recovered/Resolved]
  - C-reactive protein increased [Unknown]
  - Hepatic enzyme increased [Recovered/Resolved]
  - Aspartate aminotransferase increased [Recovered/Resolved]
  - Alanine aminotransferase increased [Recovered/Resolved]
  - Gamma-glutamyltransferase increased [Recovered/Resolved]
  - Blood lactate dehydrogenase increased [Recovered/Resolved]
  - Procalcitonin increased [Unknown]
  - Lipase increased [Unknown]
